FAERS Safety Report 4756673-7 (Version None)
Quarter: 2005Q3

REPORT INFORMATION
  Report Type: 
  Country: None (occurrence: None)
  Receive Date: 20050825
  Receipt Date: 20050426
  Transmission Date: 20060218
  Serious: Yes (Other)
  Sender: FDA-Public Use
  Company Number: WAES 0503USA00516

PATIENT
  Age: 58 Year
  Sex: Male
  Weight: 81.1939 kg

DRUGS (4)
  1. VYTORIN [Suspect]
     Indication: HYPERLIPIDAEMIA
     Dosage: 10-20 MG/DAILY/PO
     Route: 048
     Dates: start: 20041118, end: 20050214
  2. BENICAR [Concomitant]
  3. NEXIUM [Concomitant]
  4. ULTRACET [Concomitant]

REACTIONS (1)
  - RHABDOMYOLYSIS [None]
